FAERS Safety Report 7379185-3 (Version None)
Quarter: 2011Q1

REPORT INFORMATION
  Report Type: 
  Country: None (occurrence: None)
  Receive Date: 20110328
  Receipt Date: 20110318
  Transmission Date: 20110831
  Serious: Yes (Hospitalization)
  Sender: FDA-Public Use
  Company Number: JP-AMGEN-JPNCT2011014064

PATIENT
  Age: 48 Year
  Sex: Male
  Weight: 83 kg

DRUGS (2)
  1. HUMALOG [Concomitant]
     Indication: DIABETES MELLITUS
     Route: 058
     Dates: start: 20100801
  2. PANITUMUMAB [Suspect]
     Indication: COLORECTAL CANCER
     Dosage: 480 MG, Q2WK
     Route: 041
     Dates: start: 20110124, end: 20110221

REACTIONS (3)
  - DERMATITIS ACNEIFORM [None]
  - SUBCUTANEOUS ABSCESS [None]
  - PARONYCHIA [None]
